FAERS Safety Report 15558327 (Version 1)
Quarter: 2018Q4

REPORT INFORMATION
  Report Type: Spontaneous
  Country: US (occurrence: US)
  Receive Date: 20181028
  Receipt Date: 20181028
  Transmission Date: 20190205
  Serious: No
  Sender: FDA-Public Use
  Company Number: US-TEVA-2018-US-966532

PATIENT
  Sex: Male

DRUGS (1)
  1. FLUTICASONE PROPIONATE / SALMETEROL XINOFOATE [Suspect]
     Active Substance: FLUTICASONE PROPIONATE\SALMETEROL XINAFOATE
     Dosage: FLUTICASONE PROPIONATE / SALMETEROL XINOFOATE,113 MCG / 14 MCG
     Route: 065

REACTIONS (3)
  - Incorrect dose administered by device [Unknown]
  - Product quality issue [Unknown]
  - Product dose omission [Unknown]
